FAERS Safety Report 7405184-9 (Version None)
Quarter: 2011Q2

REPORT INFORMATION
  Report Type: 
  Country: None (occurrence: None)
  Receive Date: 20110411
  Receipt Date: 20110330
  Transmission Date: 20111010
  Serious: Yes (Other)
  Sender: FDA-Public Use
  Company Number: US-ELI_LILLY_AND_COMPANY-US201104000196

PATIENT
  Age: 46 Year
  Sex: Male

DRUGS (1)
  1. EFFIENT [Suspect]
     Indication: PERCUTANEOUS CORONARY INTERVENTION
     Dosage: 10 MG, QD

REACTIONS (1)
  - CORONARY ARTERY OCCLUSION [None]
